FAERS Safety Report 26217407 (Version 1)
Quarter: 2025Q4

REPORT INFORMATION
  Report Type: Spontaneous
  Country: CA (occurrence: CA)
  Receive Date: 20251231
  Receipt Date: 20251231
  Transmission Date: 20260118
  Serious: Yes (Hospitalization)
  Sender: MERCK SHARP & DOHME LLC
  Company Number: CA-009507513-2365476

PATIENT
  Age: 78 Year
  Sex: Male
  Weight: 88 kg

DRUGS (1)
  1. CUBICIN RF [Suspect]
     Active Substance: DAPTOMYCIN
     Indication: Vascular device infection
     Route: 042

REACTIONS (6)
  - Pulmonary septal thickening [Recovering/Resolving]
  - Cough [Recovering/Resolving]
  - Eosinophilic pneumonia [Recovering/Resolving]
  - Eosinophil count abnormal [Recovering/Resolving]
  - Lung consolidation [Recovering/Resolving]
  - Dyspnoea [Recovering/Resolving]
